FAERS Safety Report 21193710 (Version 1)
Quarter: 2022Q3

REPORT INFORMATION
  Report Type: Spontaneous
  Country: US (occurrence: US)
  Receive Date: 20220810
  Receipt Date: 20220810
  Transmission Date: 20221027
  Serious: No
  Sender: FDA-Public Use
  Company Number: US-GSKCCFUS-Case-01452714_AE-83253

PATIENT
  Age: 31 Year
  Sex: Female

DRUGS (1)
  1. BENLYSTA [Suspect]
     Active Substance: BELIMUMAB
     Indication: Product used for unknown indication
     Dosage: UNK, 5 ML VL (120MG/VL)
     Route: 042
     Dates: start: 20220802, end: 20220802

REACTIONS (3)
  - Burning sensation [Unknown]
  - Pain [Unknown]
  - Underdose [Unknown]

NARRATIVE: CASE EVENT DATE: 20220802
